FAERS Safety Report 5196453-4 (Version None)
Quarter: 2006Q4

REPORT INFORMATION
  Report Type: 
  Country: None (occurrence: None)
  Receive Date: 20061226
  Receipt Date: 20061212
  Transmission Date: 20070319
  Serious: Yes (Congenital Anomaly)
  Sender: FDA-Public Use
  Company Number: 2006002331

PATIENT

DRUGS (2)
  1. TARCEVA [Suspect]
     Dosage: ORAL
     Route: 048
     Dates: start: 20060303, end: 20060517
  2. DOCETAXOL (DOCETAXEL) [Concomitant]

REACTIONS (3)
  - INTRA-UTERINE DEATH [None]
  - PREGNANCY OF PARTNER [None]
  - TRANSMISSION OF DRUG VIA SEMEN [None]
